FAERS Safety Report 5999468-9 (Version None)
Quarter: 2008Q4

REPORT INFORMATION
  Report Type: 
  Country: None (occurrence: None)
  Receive Date: 20081211
  Receipt Date: 20081201
  Transmission Date: 20090506
  Serious: Yes (Death, Hospitalization)
  Sender: FDA-Public Use
  Company Number: GXKR2008TW11450

PATIENT
  Age: 3 Year
  Sex: Male

DRUGS (3)
  1. METHYLPREDNISOLONE 4MG TAB [Suspect]
     Indication: HEART TRANSPLANT REJECTION
     Dosage: 120 MG, IV BOLUS
     Route: 040
  2. TACROLIMUS [Concomitant]
  3. MYCOPHENOLATE MOFETIL [Concomitant]

REACTIONS (6)
  - BRADYCARDIA [None]
  - CARDIAC ARREST [None]
  - ENDOTRACHEAL INTUBATION [None]
  - EXTRACORPOREAL MEMBRANE OXYGENATION [None]
  - HYPOXIC ENCEPHALOPATHY [None]
  - RESUSCITATION [None]
